FAERS Safety Report 21961666 (Version 1)
Quarter: 2023Q1

REPORT INFORMATION
  Report Type: Report from Study
  Country: US (occurrence: US)
  Receive Date: 20230207
  Receipt Date: 20230207
  Transmission Date: 20230418
  Serious: Yes (Other)
  Sender: FDA-Public Use
  Company Number: US-ABBVIE-4294535

PATIENT
  Age: 71 Year
  Sex: Female

DRUGS (3)
  1. RINVOQ [Suspect]
     Active Substance: UPADACITINIB
     Indication: Rheumatoid arthritis
     Route: 048
     Dates: start: 20191116
  2. SULTOPRIDE HYDROCHLORIDE [Concomitant]
     Active Substance: SULTOPRIDE HYDROCHLORIDE
     Indication: Product used for unknown indication
     Dates: start: 20230102
  3. ARICEPT [Concomitant]
     Active Substance: DONEPEZIL HYDROCHLORIDE
     Indication: Depression
     Dates: start: 20221103

REACTIONS (3)
  - Cholecystectomy [Recovered/Resolved]
  - Pain [Recovered/Resolved]
  - COVID-19 [Unknown]

NARRATIVE: CASE EVENT DATE: 20221201
